FAERS Safety Report 5030714-4 (Version None)
Quarter: 2006Q2

REPORT INFORMATION
  Report Type: 
  Country: None (occurrence: None)
  Receive Date: 20060615
  Receipt Date: 20060530
  Transmission Date: 20061013
  Serious: Yes (Hospitalization)
  Sender: FDA-Public Use
  Company Number: 225047

PATIENT
  Sex: Male

DRUGS (3)
  1. AVASTIN [Suspect]
     Indication: COLON CANCER
     Dosage: INTRAVENOUS
     Route: 042
     Dates: start: 20060314, end: 20060331
  2. XELODA [Concomitant]
  3. OXALIPLATIN [Concomitant]

REACTIONS (3)
  - COLITIS ISCHAEMIC [None]
  - ILEITIS [None]
  - INTESTINAL ISCHAEMIA [None]
